FAERS Safety Report 25382026 (Version 1)
Quarter: 2025Q2

REPORT INFORMATION
  Report Type: Spontaneous
  Country: PL (occurrence: PL)
  Receive Date: 20250531
  Receipt Date: 20250531
  Transmission Date: 20250716
  Serious: Yes (Hospitalization)
  Sender: AUROBINDO
  Company Number: PL-002147023-NVSC2024PL247634

PATIENT
  Age: 57 Year
  Sex: Female

DRUGS (3)
  1. IMATINIB [Suspect]
     Active Substance: IMATINIB
     Indication: Dermatofibrosarcoma protuberans
     Route: 030
     Dates: start: 20090202
  2. IMATINIB [Suspect]
     Active Substance: IMATINIB
     Route: 065
  3. IMATINIB [Suspect]
     Active Substance: IMATINIB
     Route: 030
     Dates: start: 20090202

REACTIONS (3)
  - Skin hyperpigmentation [Unknown]
  - Mucosal discolouration [Unknown]
  - Oral mucosal discolouration [Unknown]
